FAERS Safety Report 12424164 (Version 1)
Quarter: 2016Q2

REPORT INFORMATION
  Report Type: Spontaneous
  Country: None (occurrence: None)
  Receive Date: 20160531
  Receipt Date: 20160531
  Transmission Date: 20160815
  Serious: Yes (Death)
  Sender: FDA-Public Use
  Company Number: None

PATIENT
  Age: 82 Year
  Sex: Male
  Weight: 93.1 kg

DRUGS (1)
  1. RIVAROXABAN, 15 MG [Suspect]
     Active Substance: RIVAROXABAN
     Indication: ATRIAL FIBRILLATION
     Route: 048

REACTIONS (4)
  - Peritonitis bacterial [None]
  - Gastrointestinal haemorrhage [None]
  - Hepatic encephalopathy [None]
  - Hypotension [None]

NARRATIVE: CASE EVENT DATE: 20160414
